FAERS Safety Report 4504438-3 (Version None)
Quarter: 2004Q4

REPORT INFORMATION
  Report Type: 
  Country: None (occurrence: None)
  Receive Date: 20041116
  Receipt Date: 20041105
  Transmission Date: 20050328
  Serious: Yes (Other)
  Sender: FDA-Public Use
  Company Number: CEL-2004-01651-ROC

PATIENT
  Sex: Female

DRUGS (3)
  1. TUSSIONEX [Suspect]
     Indication: COUGH
     Dosage: 5ML EVERY 12 HOUR PO
     Route: 048
  2. ZITHROMAX [Concomitant]
  3. ETHAMBUTOL (ETHAMBUTOL) [Concomitant]

REACTIONS (4)
  - ASPERGILLOSIS [None]
  - CONSTIPATION [None]
  - DRUG INEFFECTIVE [None]
  - INSOMNIA [None]
